FAERS Safety Report 6294269-9 (Version None)
Quarter: 2009Q3

REPORT INFORMATION
  Report Type: 
  Country: None (occurrence: None)
  Receive Date: 20090803
  Receipt Date: 20090428
  Transmission Date: 20100115
  Serious: No
  Sender: FDA-Public Use
  Company Number: A0780963A

PATIENT
  Age: 65 Year
  Sex: Female

DRUGS (1)
  1. NICORETTE [Suspect]
     Dates: start: 20090316

REACTIONS (4)
  - OROPHARYNGEAL BLISTERING [None]
  - PRODUCT QUALITY ISSUE [None]
  - STOMATITIS [None]
  - THERMAL BURN [None]
